FAERS Safety Report 5677714-9 (Version None)
Quarter: 2008Q1

REPORT INFORMATION
  Report Type: 
  Country: None (occurrence: None)
  Receive Date: 20080324
  Receipt Date: 20080318
  Transmission Date: 20080703
  Serious: Yes (Disabling)
  Sender: FDA-Public Use
  Company Number: US-BOEHRINGER INGELHEIM GMBH, GERMANY-2008-BP-03362BP

PATIENT
  Age: 61 Year
  Sex: Female

DRUGS (4)
  1. MICARDIS [Suspect]
     Indication: HYPERTENSION
  2. TOPROL [Concomitant]
  3. ZOCOR [Concomitant]
  4. METFORMIN [Concomitant]

REACTIONS (2)
  - HEADACHE [None]
  - TINNITUS [None]
